FAERS Safety Report 4704648-6 (Version None)
Quarter: 2005Q2

REPORT INFORMATION
  Report Type: 
  Country: None (occurrence: None)
  Receive Date: 20050629
  Receipt Date: 20050615
  Transmission Date: 20051028
  Serious: Yes (Hospitalization)
  Sender: FDA-Public Use
  Company Number: DSA_26633_2005

PATIENT
  Age: 18 Year
  Sex: Female

DRUGS (3)
  1. TAVOR [Suspect]
     Dosage: 5 MG ONCE PO
     Route: 048
     Dates: start: 20050612, end: 20050612
  2. DOMINAL ^ASTA^ [Suspect]
     Dosage: 2000 MG ONCE PO
     Route: 048
     Dates: start: 20050612, end: 20050612
  3. STANGYL [Suspect]
     Dates: start: 20050612, end: 20050612

REACTIONS (4)
  - DEPRESSED LEVEL OF CONSCIOUSNESS [None]
  - INTENTIONAL MISUSE [None]
  - OVERDOSE [None]
  - TACHYCARDIA [None]
